FAERS Safety Report 6136053-2 (Version None)
Quarter: 2009Q1

REPORT INFORMATION
  Report Type: 
  Country: None (occurrence: None)
  Receive Date: 20090330
  Receipt Date: 20090323
  Transmission Date: 20090719
  Serious: Yes (Hospitalization)
  Sender: FDA-Public Use
  Company Number: ES-JNJFOC-20090305561

PATIENT
  Age: 67 Year
  Sex: Female

DRUGS (8)
  1. TAVANIC [Suspect]
     Indication: DRUG USE FOR UNKNOWN INDICATION
     Route: 048
  2. PARACETAMOL [Suspect]
     Route: 048
  3. PARACETAMOL [Suspect]
     Indication: DRUG USE FOR UNKNOWN INDICATION
     Route: 048
  4. SERTRALINA [Suspect]
     Indication: DRUG USE FOR UNKNOWN INDICATION
     Route: 048
  5. CIPROFLOXACIN [Suspect]
     Indication: DRUG USE FOR UNKNOWN INDICATION
     Route: 048
  6. TRIMETHOPRIM + SULFAMETHOXAZOLE [Suspect]
     Indication: DRUG USE FOR UNKNOWN INDICATION
     Route: 048
  7. VIBRACINA [Suspect]
     Indication: DRUG USE FOR UNKNOWN INDICATION
     Route: 048
  8. MOTILIUM [Concomitant]
     Route: 048

REACTIONS (1)
  - HEPATITIS CHOLESTATIC [None]
